FAERS Safety Report 9790110 (Version 1)
Quarter: 2013Q4

REPORT INFORMATION
  Report Type: Spontaneous
  Country: US (occurrence: None)
  Receive Date: 20131230
  Receipt Date: 20131230
  Transmission Date: 20140711
  Serious: Yes (Hospitalization)
  Sender: FDA-Public Use
  Company Number: None

PATIENT
  Age: 74 Year
  Sex: Male
  Weight: 145.15 kg

DRUGS (13)
  1. TESTEROSTERONE [Concomitant]
     Indication: ATRIAL FIBRILLATION
     Route: 048
  2. AMLODIPINE [Concomitant]
  3. LISINOPRIL [Concomitant]
  4. DIPHENHYDRAMINE CAP (BENADRYL CAP) [Concomitant]
  5. ASPIRIN [Concomitant]
  6. NEBIVOLOL HCL (BYSTOLIC) [Concomitant]
  7. LEVOTHYROXINE SODIUM (SYNTHROID) [Concomitant]
  8. FUROSEMIDE [Concomitant]
  9. FISH OIL/VITMAIN E (LOVAZA) [Concomitant]
  10. BLOD SUGAR DIAGNOSTIC (ONE TOUCH ULTRA TEST) [Concomitant]
  11. METFORMIN ER (GLUCOPHAGE XR) [Concomitant]
  12. OMEPRAZOLE [Concomitant]
  13. WARFARIN [Suspect]
     Indication: ATRIAL FIBRILLATION
     Dosage: 10 MG, DAILY, AS DIRECTED, ORAL. FOR 6 YEARS.
     Route: 048

REACTIONS (1)
  - International normalised ratio increased [None]
